FAERS Safety Report 26159977 (Version 1)
Quarter: 2025Q4

REPORT INFORMATION
  Report Type: Spontaneous
  Country: CN (occurrence: CN)
  Receive Date: 20251216
  Receipt Date: 20251216
  Transmission Date: 20260117
  Serious: Yes (Death, Hospitalization, Other)
  Sender: AMNEAL
  Company Number: CN-AMNEAL PHARMACEUTICALS-2025-AMRX-04785

PATIENT
  Age: 82 Year
  Sex: Female
  Weight: 49 kg

DRUGS (6)
  1. LINEZOLID [Suspect]
     Active Substance: LINEZOLID
     Indication: Acinetobacter infection
     Dosage: UNK
     Route: 065
  2. CEFOPERAZONE\SULBACTAM [Concomitant]
     Active Substance: CEFOPERAZONE\SULBACTAM
     Indication: Acinetobacter infection
     Dosage: UNK
     Route: 065
  3. TIGECYCLINE [Concomitant]
     Active Substance: TIGECYCLINE
     Indication: Acinetobacter infection
     Dosage: UNK
     Route: 065
  4. ERTAPENEM [Concomitant]
     Active Substance: ERTAPENEM
     Indication: Respiratory failure
     Dosage: UNK
     Route: 065
  5. CIPROFLOXACIN [Concomitant]
     Active Substance: CIPROFLOXACIN
     Indication: Respiratory failure
     Dosage: UNK
     Route: 065
  6. PERAMIVIR [Concomitant]
     Active Substance: PERAMIVIR
     Indication: Respiratory failure
     Dosage: UNK
     Route: 065

REACTIONS (3)
  - Hyperlactacidaemia [Fatal]
  - Metabolic alkalosis [Fatal]
  - Mitochondrial toxicity [Fatal]
